FAERS Safety Report 21532854 (Version 2)
Quarter: 2022Q4

REPORT INFORMATION
  Report Type: Report from Study
  Country: SE (occurrence: SE)
  Receive Date: 20221101
  Receipt Date: 20221102
  Transmission Date: 20230113
  Serious: Yes (Hospitalization, Disabling, Other)
  Sender: FDA-Public Use
  Company Number: SE-ABBVIE-4180418

PATIENT
  Age: 83 Year
  Sex: Female

DRUGS (3)
  1. CARBIDOPA\LEVODOPA [Suspect]
     Active Substance: CARBIDOPA\LEVODOPA
     Indication: Parkinson^s disease
     Route: 050
     Dates: start: 20190912
  2. CARBIDOPA\LEVODOPA [Suspect]
     Active Substance: CARBIDOPA\LEVODOPA
  3. PRAMIPEXOLE [Concomitant]
     Active Substance: PRAMIPEXOLE
     Indication: Product used for unknown indication

REACTIONS (8)
  - Thermal burn [Recovering/Resolving]
  - Limb crushing injury [Recovering/Resolving]
  - Formication [Not Recovered/Not Resolved]
  - Fall [Unknown]
  - Finger amputation [Unknown]
  - Device dislocation [Not Recovered/Not Resolved]
  - Fall [Unknown]
  - Skin graft [Unknown]

NARRATIVE: CASE EVENT DATE: 20220101
